FAERS Safety Report 21385559 (Version 2)
Quarter: 2023Q1

REPORT INFORMATION
  Report Type: Report from Study
  Country: US (occurrence: US)
  Receive Date: 20220928
  Receipt Date: 20230109
  Transmission Date: 20230418
  Serious: Yes (Hospitalization, Other)
  Sender: FDA-Public Use
  Company Number: US-ABBVIE-4130963

PATIENT
  Age: 63 Year
  Sex: Female

DRUGS (1)
  1. HUMIRA [Suspect]
     Active Substance: ADALIMUMAB
     Indication: Crohn^s disease
     Dosage: EVENT CESSATION DATE FOR RUPTURED BRAIN ANEURYSM AND ONSET FOR CROHNS FLARE UP SHOULD AT LEAST 2022.
     Route: 058

REACTIONS (3)
  - Ruptured cerebral aneurysm [Recovered/Resolved]
  - Crohn^s disease [Recovering/Resolving]
  - Intracranial aneurysm [Unknown]

NARRATIVE: CASE EVENT DATE: 20220901
